FAERS Safety Report 9771894 (Version 1)
Quarter: 2013Q4

REPORT INFORMATION
  Report Type: Report from Study
  Country: BR (occurrence: BR)
  Receive Date: 20131219
  Receipt Date: 20131219
  Transmission Date: 20140711
  Serious: Yes (Disabling, Other)
  Sender: FDA-Public Use
  Company Number: PHHY2013BR148430

PATIENT
  Sex: Female

DRUGS (2)
  1. EXELON/ENA 713 [Suspect]
     Dosage: 6 MG, UNK
  2. EXELON/ENA 713 [Suspect]
     Dosage: 1.5 MG, UNK

REACTIONS (6)
  - Abasia [Unknown]
  - Dementia Alzheimer^s type [Unknown]
  - General physical health deterioration [Unknown]
  - Impaired reasoning [Unknown]
  - Nervousness [Unknown]
  - Dysstasia [None]
